FAERS Safety Report 4279174-1 (Version None)
Quarter: 2004Q1

REPORT INFORMATION
  Report Type: 
  Country: None (occurrence: None)
  Receive Date: 20040123
  Receipt Date: 20040123
  Transmission Date: 20041129
  Serious: Yes (Other)
  Sender: FDA-Public Use
  Company Number: None

PATIENT
  Age: 84 Year
  Sex: Female

DRUGS (2)
  1. CIPRO [Suspect]
     Indication: ESCHERICHIA URINARY TRACT INFECTION
     Dosage: 400 MG IV Q 12 HR
     Route: 042
  2. TEQUIN [Suspect]
     Dosage: 400 MG IV Q 12 HR
     Route: 042

REACTIONS (3)
  - EOSINOPHILS URINE PRESENT [None]
  - MEDICATION ERROR [None]
  - RENAL IMPAIRMENT [None]
